FAERS Safety Report 25360585 (Version 2)
Quarter: 2025Q2

REPORT INFORMATION
  Report Type: Spontaneous
  Country: JP (occurrence: JP)
  Receive Date: 20250527
  Receipt Date: 20250626
  Transmission Date: 20250717
  Serious: Yes (Hospitalization, Other)
  Sender: MERCK SHARP & DOHME LLC
  Company Number: JP-009507513-2288875

PATIENT
  Age: 70 Year
  Sex: Male

DRUGS (1)
  1. PEMBROLIZUMAB [Suspect]
     Active Substance: PEMBROLIZUMAB
     Route: 065

REACTIONS (13)
  - Feeding disorder [Unknown]
  - Disorientation [Unknown]
  - Hypophysitis [Recovered/Resolved]
  - Renal failure [Recovered/Resolved]
  - Cognitive disorder [Unknown]
  - Somnolence [Unknown]
  - Decreased appetite [Recovering/Resolving]
  - Adrenal insufficiency [Unknown]
  - Leukoencephalopathy [Unknown]
  - Malaise [Recovering/Resolving]
  - Motor dysfunction [Unknown]
  - Restlessness [Unknown]
  - Stress [Unknown]
